FAERS Safety Report 7802241-X (Version None)
Quarter: 2011Q4

REPORT INFORMATION
  Report Type: 
  Country: None (occurrence: None)
  Receive Date: 20111007
  Receipt Date: 20110927
  Transmission Date: 20120403
  Serious: Yes (Other)
  Sender: FDA-Public Use
  Company Number: US-JNJFOC-20110907000

PATIENT
  Sex: Female

DRUGS (2)
  1. CHILDREN'S MOTRIN [Suspect]
     Indication: UPPER LIMB FRACTURE
     Route: 048
  2. CHILDREN'S MOTRIN [Suspect]
     Route: 048

REACTIONS (2)
  - PRODUCT QUALITY ISSUE [None]
  - HALLUCINATION [None]
